FAERS Safety Report 10213355 (Version 1)
Quarter: 2014Q2

REPORT INFORMATION
  Report Type: Spontaneous
  Country: US (occurrence: None)
  Receive Date: 20140530
  Receipt Date: 20140530
  Transmission Date: 20141212
  Serious: Yes (Hospitalization)
  Sender: FDA-Public Use
  Company Number: None

PATIENT
  Age: 87 Year
  Sex: Male
  Weight: 79.5 kg

DRUGS (1)
  1. CLARITHROMYCIN [Suspect]
     Dates: start: 20140326

REACTIONS (3)
  - Dyspnoea [None]
  - Nausea [None]
  - Vomiting [None]
